FAERS Safety Report 6246062-0 (Version None)
Quarter: 2009Q2

REPORT INFORMATION
  Report Type: 
  Country: None (occurrence: None)
  Receive Date: 20090626
  Receipt Date: 20090121
  Transmission Date: 20091009
  Serious: No
  Sender: FDA-Public Use
  Company Number: A0764522A

PATIENT
  Age: 68 Year
  Sex: Female

DRUGS (5)
  1. IMITREX [Suspect]
     Indication: MIGRAINE
     Dosage: 50MG AS REQUIRED
     Route: 048
     Dates: start: 20050101
  2. METOPROLOL SUCCINATE [Concomitant]
  3. LISINOPRIL [Concomitant]
  4. ALENDRONATE [Concomitant]
  5. UNKNOWN MEDICATION [Concomitant]

REACTIONS (2)
  - DRUG ADMINISTRATION ERROR [None]
  - DRUG INEFFECTIVE [None]
